FAERS Safety Report 7765288-8 (Version None)
Quarter: 2011Q3

REPORT INFORMATION
  Report Type: 
  Country: None (occurrence: None)
  Receive Date: 20110916
  Receipt Date: 20110907
  Transmission Date: 20111222
  Serious: Yes (Other)
  Sender: FDA-Public Use
  Company Number: MC201100435

PATIENT

DRUGS (2)
  1. ANGIOMAX [Suspect]
     Indication: CARDIOPULMONARY BYPASS
     Dosage: SEE IMAGE
     Route: 040
  2. ANGIOMAX [Suspect]
     Dosage: 2.5 MG/KG, HR, INTRAVENOUS
     Route: 042

REACTIONS (4)
  - OFF LABEL USE [None]
  - THROMBOSIS [None]
  - HAEMORRHAGE [None]
  - HAEMODIALYSIS [None]
